FAERS Safety Report 23957792 (Version 1)
Quarter: 2024Q2

REPORT INFORMATION
  Report Type: Report from Study
  Country: DO (occurrence: DO)
  Receive Date: 20240610
  Receipt Date: 20240610
  Transmission Date: 20240716
  Serious: Yes (Death)
  Sender: FDA-Public Use
  Company Number: DO-JNJFOC-20240615567

PATIENT
  Age: 88 Year
  Sex: Male
  Weight: 54 kg

DRUGS (1)
  1. IMBRUVICA [Suspect]
     Active Substance: IBRUTINIB
     Indication: Chronic lymphocytic leukaemia
     Dosage: 1 TABLET
     Route: 048
     Dates: start: 20210806, end: 20240116

REACTIONS (1)
  - Death [Fatal]

NARRATIVE: CASE EVENT DATE: 20240517
